FAERS Safety Report 21608634 (Version 2)
Quarter: 2023Q1

REPORT INFORMATION
  Report Type: Spontaneous
  Country: US (occurrence: US)
  Receive Date: 20221117
  Receipt Date: 20230227
  Transmission Date: 20230417
  Serious: No
  Sender: FDA-Public Use
  Company Number: US-PFIZER INC-202201300186

PATIENT
  Age: 82 Year
  Sex: Female
  Weight: 86.64 kg

DRUGS (1)
  1. VYNDAMAX [Suspect]
     Active Substance: TAFAMIDIS
     Dosage: 61 MG, 1X/DAY
     Dates: start: 20221023

REACTIONS (1)
  - Therapeutic response unexpected [Unknown]
